FAERS Safety Report 14322316 (Version 1)
Quarter: 2017Q4

REPORT INFORMATION
  Report Type: Spontaneous
  Country: CH (occurrence: CH)
  Receive Date: 20171225
  Receipt Date: 20171225
  Transmission Date: 20180321
  Serious: Yes (Hospitalization)
  Sender: FDA-Public Use
  Company Number: CH-CONCORDIA PHARMACEUTICALS INC.-GSH201712-006696

PATIENT
  Age: 63 Year
  Sex: Female

DRUGS (3)
  1. PLAQUENIL [Suspect]
     Active Substance: HYDROXYCHLOROQUINE SULFATE
     Indication: PRODUCT USED FOR UNKNOWN INDICATION
     Route: 048
  2. PLAQUENIL [Suspect]
     Active Substance: HYDROXYCHLOROQUINE SULFATE
     Route: 048
     Dates: start: 201709, end: 20171013
  3. PREDNISON STREULI [Concomitant]
     Active Substance: PREDNISONE

REACTIONS (2)
  - Febrile neutropenia [Recovered/Resolved]
  - Hepatic necrosis [Recovering/Resolving]

NARRATIVE: CASE EVENT DATE: 201710
